FAERS Safety Report 5907365-X (Version None)
Quarter: 2008Q4

REPORT INFORMATION
  Report Type: 
  Country: None (occurrence: None)
  Receive Date: 20081003
  Receipt Date: 20080923
  Transmission Date: 20090506
  Serious: Yes (Hospitalization)
  Sender: FDA-Public Use
  Company Number: US-ELI_LILLY_AND_COMPANY-US200802002373

PATIENT
  Sex: Male

DRUGS (7)
  1. ALIMTA [Suspect]
     Indication: LUNG NEOPLASM MALIGNANT
     Dosage: UNK, UNK
     Dates: start: 20071001
  2. AVASTIN [Concomitant]
     Indication: LUNG NEOPLASM MALIGNANT
     Dosage: UNK, UNK
  3. ATIVAN [Concomitant]
     Dosage: UNK, UNK
  4. FOLIC ACID [Concomitant]
     Dosage: UNK, UNK
  5. DEXAMETHASONE [Concomitant]
     Dosage: 4 MG, 2/D
     Route: 048
  6. VITAMIN B-12 [Concomitant]
     Dosage: UNK, UNK
  7. ZOFRAN [Concomitant]

REACTIONS (7)
  - BURNING SENSATION [None]
  - ERYTHEMA [None]
  - HEADACHE [None]
  - LEUKOCYTOCLASTIC VASCULITIS [None]
  - MUSCULOSKELETAL STIFFNESS [None]
  - OEDEMA PERIPHERAL [None]
  - PAIN IN EXTREMITY [None]
